FAERS Safety Report 9707693 (Version 1)
Quarter: 2013Q4

REPORT INFORMATION
  Report Type: Report from Study
  Country: US (occurrence: US)
  Receive Date: 20131125
  Receipt Date: 20131125
  Transmission Date: 20140711
  Serious: Yes (Hospitalization)
  Sender: FDA-Public Use
  Company Number: PHHY2013US133262

PATIENT
  Sex: Male

DRUGS (4)
  1. XOLAIR [Suspect]
     Indication: ASTHMA
     Dosage: UNK
  2. BUSPIRONE HYDROCHLORIDE [Suspect]
     Indication: PANIC REACTION
     Dosage: UNK
  3. THEOPHYLLINE [Concomitant]
     Dosage: UNK
  4. ADVAIR DISKUS [Concomitant]
     Dosage: UNK

REACTIONS (9)
  - Asthma [Unknown]
  - Status asthmaticus [Unknown]
  - Anxiety [Unknown]
  - Panic reaction [Unknown]
  - Poisoning [Unknown]
  - Wheezing [Unknown]
  - Pain [Unknown]
  - Chills [Unknown]
  - Cough [Unknown]
